FAERS Safety Report 21106462 (Version 2)
Quarter: 2022Q3

REPORT INFORMATION
  Report Type: Report from Study
  Country: IT (occurrence: IT)
  Receive Date: 20220720
  Receipt Date: 20220725
  Transmission Date: 20221027
  Serious: Yes (Death)
  Sender: FDA-Public Use
  Company Number: IT-DSJP-DSU-2022-125447

PATIENT
  Age: 81 Year
  Sex: Female
  Weight: 53 kg

DRUGS (4)
  1. ENHERTU [Suspect]
     Active Substance: FAM-TRASTUZUMAB DERUXTECAN-NXKI
     Indication: HER2 positive breast cancer
     Dosage: 285 MG, ONCE EVERY 3 WK
     Route: 042
     Dates: start: 20220427, end: 20220707
  2. ENHERTU [Suspect]
     Active Substance: FAM-TRASTUZUMAB DERUXTECAN-NXKI
     Indication: Breast cancer metastatic
  3. AKYNZEO (NETUPITANT\PALONOSETRON) [Concomitant]
     Active Substance: NETUPITANT\PALONOSETRON
     Indication: Vomiting
     Dosage: 300 MG, ONCE EVERY 3 WK
     Route: 048
     Dates: start: 20220427, end: 20220707
  4. DEXAMETHASONE [Concomitant]
     Active Substance: DEXAMETHASONE
     Indication: Vomiting
     Dosage: 8 MG, ONCE EVERY 3 WK
     Route: 042
     Dates: start: 20220427, end: 20220707

REACTIONS (1)
  - Death [Fatal]

NARRATIVE: CASE EVENT DATE: 20220712
